FAERS Safety Report 18564176 (Version 1)
Quarter: 2020Q4

REPORT INFORMATION
  Report Type: Spontaneous
  Country: US (occurrence: US)
  Receive Date: 20201130
  Receipt Date: 20201130
  Transmission Date: 20210114
  Serious: Yes (Other)
  Sender: FDA-Public Use
  Company Number: None

PATIENT
  Age: 80 Year
  Sex: Female
  Weight: 65.7 kg

DRUGS (17)
  1. CIPROFLOXACIN. [Concomitant]
     Active Substance: CIPROFLOXACIN
  2. ISOSORBIDE. [Concomitant]
     Active Substance: ISOSORBIDE
  3. MULTIVITAMIN [Concomitant]
     Active Substance: VITAMINS
  4. PERCOCET [Concomitant]
     Active Substance: ACETAMINOPHEN\OXYCODONE HYDROCHLORIDE
  5. BIOTIN [Concomitant]
     Active Substance: BIOTIN
  6. POTASSIUM [Concomitant]
     Active Substance: POTASSIUM
  7. ELIQUIS [Concomitant]
     Active Substance: APIXABAN
  8. LEVOCETIRIZINE [Concomitant]
     Active Substance: LEVOCETIRIZINE
  9. VERZENIO [Suspect]
     Active Substance: ABEMACICLIB
     Indication: BREAST CANCER
     Route: 048
     Dates: start: 20181220, end: 20201130
  10. ATORVASTATIN [Concomitant]
     Active Substance: ATORVASTATIN
  11. PROMETHAZINE [Concomitant]
     Active Substance: PROMETHAZINE HYDROCHLORIDE
  12. HYDROCHLOROTHIAZIDE. [Concomitant]
     Active Substance: HYDROCHLOROTHIAZIDE
  13. MOVANTIK [Concomitant]
     Active Substance: NALOXEGOL OXALATE
  14. SOTALOL. [Concomitant]
     Active Substance: SOTALOL
  15. LEVOTHYROXINE. [Concomitant]
     Active Substance: LEVOTHYROXINE
  16. METHOCARBAMOL. [Concomitant]
     Active Substance: METHOCARBAMOL
  17. VITAMIN D3 [Concomitant]
     Active Substance: CHOLECALCIFEROL

REACTIONS (1)
  - Disease progression [None]

NARRATIVE: CASE EVENT DATE: 20201130
